FAERS Safety Report 7064372-4 (Version None)
Quarter: 2010Q4

REPORT INFORMATION
  Report Type: 
  Country: None (occurrence: None)
  Receive Date: 20101022
  Receipt Date: 20101022
  Transmission Date: 20110411
  Serious: No
  Sender: FDA-Public Use
  Company Number: None

PATIENT
  Age: 28 Year
  Sex: Female
  Weight: 68.4932 kg

DRUGS (1)
  1. MIRENA [Suspect]

REACTIONS (3)
  - ABDOMINAL PAIN [None]
  - DEVICE EXPULSION [None]
  - MUSCLE SPASMS [None]
